FAERS Safety Report 13240703 (Version 1)
Quarter: 2017Q1

REPORT INFORMATION
  Report Type: Spontaneous
  Country: GB (occurrence: GB)
  Receive Date: 20170216
  Receipt Date: 20170216
  Transmission Date: 20170428
  Serious: Yes (Hospitalization)
  Sender: FDA-Public Use
  Company Number: PHFR2017GB001005

PATIENT
  Age: 52 Year
  Sex: Male

DRUGS (2)
  1. USTEKINUMAB [Suspect]
     Active Substance: USTEKINUMAB
     Indication: PRODUCT USED FOR UNKNOWN INDICATION
     Route: 065
     Dates: start: 20161206
  2. SECUKINUMAB [Suspect]
     Active Substance: SECUKINUMAB
     Indication: PSORIASIS
     Dosage: 300 MG, UNK
     Route: 058
     Dates: start: 20161105, end: 20170107

REACTIONS (4)
  - Pyelonephritis acute [Recovered/Resolved]
  - Chromaturia [Unknown]
  - Flank pain [Unknown]
  - Malaise [Unknown]

NARRATIVE: CASE EVENT DATE: 20161212
